FAERS Safety Report 9923039 (Version 1)
Quarter: 2014Q1

REPORT INFORMATION
  Report Type: Spontaneous
  Country: US (occurrence: US)
  Receive Date: 20140225
  Receipt Date: 20140225
  Transmission Date: 20141002
  Serious: No
  Sender: FDA-Public Use
  Company Number: US-AMGEN-USASP2013069165

PATIENT
  Age: 61 Year
  Sex: Female
  Weight: 61.22 kg

DRUGS (8)
  1. ENBREL [Suspect]
     Indication: PRODUCT USED FOR UNKNOWN INDICATION
     Dosage: 50 MG, 2 TIMES/WK
     Route: 058
  2. FENOFIBRAT [Concomitant]
     Dosage: 200 MG, UNK
  3. METOPROLOL TARTRATE [Concomitant]
     Dosage: 50 MG, UNK
  4. LISINOPRIL [Concomitant]
     Dosage: 10 MG, UNK
  5. FOLIC ACID [Concomitant]
     Dosage: 1 MG, UNK
  6. PRILOSEC                           /00661201/ [Concomitant]
     Dosage: 10 MG, UNK
  7. ATORVASTATIN [Concomitant]
     Dosage: 10 MG, UNK
  8. METHOTREXATE [Concomitant]
     Dosage: 2.5 MG, UNK

REACTIONS (1)
  - Alopecia [Unknown]
